FAERS Safety Report 21286486 (Version 1)
Quarter: 2022Q3

REPORT INFORMATION
  Report Type: Spontaneous
  Country: JP (occurrence: JP)
  Receive Date: 20220902
  Receipt Date: 20220902
  Transmission Date: 20221027
  Serious: Yes (Hospitalization, Other)
  Sender: FDA-Public Use
  Company Number: JP-PFIZER INC-202201100448

PATIENT

DRUGS (1)
  1. RHEUMATREX [Suspect]
     Active Substance: METHOTREXATE SODIUM

REACTIONS (5)
  - Renal impairment [Unknown]
  - Platelet count decreased [Unknown]
  - Anaemia [Unknown]
  - Mean cell volume increased [Unknown]
  - Folate deficiency [Unknown]
